FAERS Safety Report 4591578-6 (Version None)
Quarter: 2005Q1

REPORT INFORMATION
  Report Type: 
  Country: None (occurrence: None)
  Receive Date: 20050223
  Receipt Date: 20050223
  Transmission Date: 20050727
  Serious: Yes (Death)
  Sender: FDA-Public Use
  Company Number: None

PATIENT
  Age: 73 Year
  Sex: Male
  Weight: 88 kg

DRUGS (2)
  1. PLAVIX [Suspect]
     Indication: CATHETERISATION CARDIAC
     Dosage: 600MG   ONCE   ORAL
     Route: 048
     Dates: start: 20050209, end: 20050209
  2. INTEGRILIN [Suspect]
     Indication: CATHETERISATION CARDIAC
     Dosage: SEE PRIOR PG
     Dates: start: 20050209, end: 20050209

REACTIONS (5)
  - COMA [None]
  - CONFUSIONAL STATE [None]
  - DISORIENTATION [None]
  - HEADACHE [None]
  - VOMITING [None]
